FAERS Safety Report 24553823 (Version 1)
Quarter: 2024Q4

REPORT INFORMATION
  Report Type: Spontaneous
  Country: US (occurrence: US)
  Receive Date: 20241028
  Receipt Date: 20241028
  Transmission Date: 20250114
  Serious: No
  Sender: ROCHE
  Company Number: US-ROCHE-10000053497

PATIENT
  Age: 12 Year
  Sex: Male

DRUGS (3)
  1. NUTROPIN [Suspect]
     Active Substance: SOMATROPIN
     Indication: Hypopituitarism
     Dosage: NUTROPIN 20MG
     Route: 058
     Dates: start: 202312
  2. NUTROPIN [Suspect]
     Active Substance: SOMATROPIN
     Dosage: NUTROPIN 20MG
     Route: 065
  3. NUTROPIN [Suspect]
     Active Substance: SOMATROPIN
     Dosage: NUTROPIN 20MG
     Route: 058
     Dates: start: 202312

REACTIONS (2)
  - Product complaint [Unknown]
  - No adverse event [Unknown]

NARRATIVE: CASE EVENT DATE: 20240807
